FAERS Safety Report 14451446 (Version 2)
Quarter: 2019Q1

REPORT INFORMATION
  Report Type: Spontaneous
  Country: US (occurrence: US)
  Receive Date: 20180129
  Receipt Date: 20190204
  Transmission Date: 20190417
  Serious: No
  Sender: FDA-Public Use
  Company Number: US-ABBVIE-18K-163-2209032-00

PATIENT

DRUGS (3)
  1. CLINDAMYCIN. [Suspect]
     Active Substance: CLINDAMYCIN
     Indication: PRODUCT USED FOR UNKNOWN INDICATION
     Dosage: 10 DAY COURSE
     Route: 065
  2. HUMIRA [Suspect]
     Active Substance: ADALIMUMAB
     Indication: PRODUCT USED FOR UNKNOWN INDICATION
     Route: 058
  3. CLINDAMYCIN. [Suspect]
     Active Substance: CLINDAMYCIN
     Dosage: 10 DAY COURSE
     Route: 065

REACTIONS (6)
  - Cellulitis [Unknown]
  - Sinusitis [Not Recovered/Not Resolved]
  - Malaise [Unknown]
  - Condition aggravated [Unknown]
  - Streptococcal infection [Recovered/Resolved]
  - Candida infection [Unknown]

NARRATIVE: CASE EVENT DATE: 2017
